FAERS Safety Report 11789465 (Version 1)
Quarter: 2015Q4

REPORT INFORMATION
  Report Type: Spontaneous
  Country: US (occurrence: None)
  Receive Date: 20151130
  Receipt Date: 20151130
  Transmission Date: 20160305
  Serious: Yes (Other)
  Sender: FDA-Public Use
  Company Number: None

PATIENT
  Age: 61 Year
  Sex: Male
  Weight: 63 kg

DRUGS (8)
  1. CANASA [Concomitant]
     Active Substance: MESALAMINE
  2. PANTOPRAZOLE [Concomitant]
     Active Substance: PANTOPRAZOLE SODIUM
  3. RECLAST [Concomitant]
     Active Substance: ZOLEDRONIC ACID
  4. ATORVASTATIN [Concomitant]
     Active Substance: ATORVASTATIN
  5. LIALDA [Concomitant]
     Active Substance: MESALAMINE
  6. ENTYVIO [Suspect]
     Active Substance: VEDOLIZUMAB
     Indication: CROHN^S DISEASE
     Dosage: 300 MG  EVERY 3 MONTHS  INTRAVENOUS
     Route: 042
  7. MULTIPLE VITAMINS AND SUPPLEMENTS [Concomitant]
  8. REQUIP [Concomitant]
     Active Substance: ROPINIROLE HYDROCHLORIDE

REACTIONS (3)
  - Arthritis [None]
  - Pericarditis [None]
  - Systemic lupus erythematosus [None]

NARRATIVE: CASE EVENT DATE: 20150615
